FAERS Safety Report 4341368-4 (Version None)
Quarter: 2004Q2

REPORT INFORMATION
  Report Type: 
  Country: None (occurrence: None)
  Receive Date: 20040412
  Receipt Date: 20030321
  Transmission Date: 20050107
  Serious: Yes (Hospitalization)
  Sender: FDA-Public Use
  Company Number: HQWYE228624MAR03

PATIENT
  Sex: Female

DRUGS (3)
  1. REGLAN [Suspect]
     Indication: NAUSEA
     Dosage: 10 MG QD IV
     Route: 042
     Dates: start: 20030320, end: 20030320
  2. BENADRYL [Suspect]
     Indication: NAUSEA
     Dates: start: 20030320, end: 20030320
  3. ZANTAC [Suspect]
     Indication: NAUSEA
     Dates: start: 20030320, end: 20030320

REACTIONS (1)
  - CONVULSION [None]
